FAERS Safety Report 5238246-5 (Version None)
Quarter: 2007Q1

REPORT INFORMATION
  Report Type: 
  Country: None (occurrence: None)
  Receive Date: 20070215
  Receipt Date: 20070207
  Transmission Date: 20070707
  Serious: Yes (Life-Threatening, Hospitalization)
  Sender: FDA-Public Use
  Company Number: NL-AVENTIS-200711197GDDC

PATIENT
  Age: 60 Year
  Sex: Female

DRUGS (2)
  1. ARAVA [Suspect]
     Dosage: DOSE: UNK
     Route: 048
     Dates: start: 20060101, end: 20061201
  2. REMICADE [Suspect]
     Dosage: DOSE: UNK
     Route: 042
     Dates: start: 20060101, end: 20070101

REACTIONS (1)
  - HEPATIC FAILURE [None]
